FAERS Safety Report 11796195 (Version 1)
Quarter: 2015Q4

REPORT INFORMATION
  Report Type: Spontaneous
  Country: BR (occurrence: BR)
  Receive Date: 20151203
  Receipt Date: 20151203
  Transmission Date: 20160305
  Serious: Yes (Death)
  Sender: FDA-Public Use
  Company Number: BR-UCBSA-2015031011

PATIENT
  Age: 58 Year
  Sex: Female

DRUGS (2)
  1. CIMZIA [Suspect]
     Active Substance: CERTOLIZUMAB PEGOL
     Indication: PRODUCT USED FOR UNKNOWN INDICATION
     Dosage: 200 MG, 2X/MONTH
     Dates: start: 201503, end: 2015
  2. CIMZIA [Suspect]
     Active Substance: CERTOLIZUMAB PEGOL
     Dosage: 200 MG, 2X/MONTH
     Dates: start: 2015, end: 20151030

REACTIONS (6)
  - Catarrh [Fatal]
  - Drug dose omission [Unknown]
  - Labyrinthitis [Unknown]
  - Pleural effusion [Fatal]
  - Immune system disorder [Fatal]
  - Cardiomegaly [Fatal]

NARRATIVE: CASE EVENT DATE: 201507
